FAERS Safety Report 9863687 (Version 1)
Quarter: 2014Q1

REPORT INFORMATION
  Report Type: Spontaneous
  Country: US (occurrence: US)
  Receive Date: 20140203
  Receipt Date: 20140203
  Transmission Date: 20141002
  Serious: Yes (Other)
  Sender: FDA-Public Use
  Company Number: US-BAYER-2014-016928

PATIENT
  Age: 46 Year
  Sex: Female
  Weight: 91 kg

DRUGS (1)
  1. BAYER GENUINE ASPIRIN ORIGINAL STRENGTH [Suspect]
     Indication: ISCHAEMIC HEART DISEASE PROPHYLAXIS
     Dosage: UNK
     Route: 048
     Dates: end: 2003

REACTIONS (3)
  - Throat tightness [Recovered/Resolved]
  - Urticaria [Recovered/Resolved]
  - Intentional drug misuse [None]
